FAERS Safety Report 5312210-X (Version None)
Quarter: 2007Q2

REPORT INFORMATION
  Report Type: 
  Country: None (occurrence: None)
  Receive Date: 20070430
  Receipt Date: 20060825
  Transmission Date: 20071010
  Serious: No
  Sender: FDA-Public Use
  Company Number: 2006UW16922

PATIENT
  Age: 58 Year
  Sex: Female
  Weight: 50.3 kg

DRUGS (2)
  1. NEXIUM [Suspect]
     Indication: GASTROOESOPHAGEAL REFLUX DISEASE
     Route: 048
  2. SUCROFATE [Concomitant]

REACTIONS (1)
  - PRODUCTIVE COUGH [None]
